FAERS Safety Report 8302678-9 (Version None)
Quarter: 2012Q2

REPORT INFORMATION
  Report Type: 
  Country: None (occurrence: None)
  Receive Date: 20120420
  Receipt Date: 20120417
  Transmission Date: 20120825
  Serious: Yes (Death, Hospitalization, Other)
  Sender: FDA-Public Use
  Company Number: ES-ABBOTT-11P-144-0842904-00

PATIENT
  Age: 61 Year
  Sex: Male

DRUGS (7)
  1. CEMIDON B6 [Concomitant]
     Indication: LATENT TUBERCULOSIS
     Dates: start: 20101217, end: 20110410
  2. HUMIRA [Suspect]
     Dates: end: 20110427
  3. NEXIUM [Concomitant]
     Indication: PRODUCT USED FOR UNKNOWN INDICATION
     Route: 048
  4. METHOTREXATE [Concomitant]
     Indication: RHEUMATOID ARTHRITIS
     Route: 048
     Dates: start: 20110120, end: 20110410
  5. PREDNISONE TAB [Concomitant]
     Indication: RHEUMATOID ARTHRITIS
     Route: 048
     Dates: start: 20110120
  6. HUMIRA [Suspect]
     Indication: RHEUMATOID ARTHRITIS
     Route: 058
     Dates: start: 20110120, end: 20110410
  7. FOLAXIN [Concomitant]
     Indication: RHEUMATOID ARTHRITIS
     Dosage: 1 TAB 2 DAYS AFTER METHOTREXATE WEEKLY
     Route: 048
     Dates: start: 20110120, end: 20110410

REACTIONS (7)
  - BILE DUCT CANCER [None]
  - ARTHRALGIA [None]
  - JAUNDICE CHOLESTATIC [None]
  - BILIARY DILATATION [None]
  - GASTRIC CANCER STAGE IV [None]
  - CONSTIPATION [None]
  - INSOMNIA [None]
